FAERS Safety Report 4860149-6 (Version None)
Quarter: 2005Q4

REPORT INFORMATION
  Report Type: 
  Country: None (occurrence: None)
  Receive Date: 20051215
  Receipt Date: 20051202
  Transmission Date: 20060501
  Serious: Yes (Death)
  Sender: FDA-Public Use
  Company Number: S05-USA-04913-01

PATIENT
  Age: 83 Year
  Sex: Male
  Weight: 104.3273 kg

DRUGS (15)
  1. NAMENDA [Suspect]
     Indication: VASCULAR DEMENTIA
     Dosage: 5 MG ONCE PO
     Route: 048
     Dates: start: 20051101, end: 20051101
  2. REMINYL (GALANTAMINE) [Concomitant]
  3. ATENOLOL [Concomitant]
  4. TERAZOSIN [Concomitant]
  5. ASPIRIN [Concomitant]
  6. POTASSIUM CHLORIDE [Concomitant]
  7. FELODIPINE [Concomitant]
  8. HYDRALAZINE [Concomitant]
  9. TRIAMTERENE/HYDROCHLOROTHIAZINE [Concomitant]
  10. FOLIC ACID [Concomitant]
  11. COSOPT [Concomitant]
  12. TRAVATAN [Concomitant]
  13. GLYBURIDE [Concomitant]
  14. LISINOPRIL [Concomitant]
  15. CLONIDINE [Concomitant]

REACTIONS (7)
  - ARRHYTHMIA [None]
  - BRAIN DEATH [None]
  - CARDIAC ARREST [None]
  - CEREBRAL ISCHAEMIA [None]
  - CONTUSION [None]
  - FALL [None]
  - HYPOXIA [None]
